FAERS Safety Report 6179142-9 (Version None)
Quarter: 2009Q2

REPORT INFORMATION
  Report Type: 
  Country: None (occurrence: None)
  Receive Date: 20090505
  Receipt Date: 20090427
  Transmission Date: 20091009
  Serious: Yes (Hospitalization)
  Sender: FDA-Public Use
  Company Number: US-ELI_LILLY_AND_COMPANY-US200904006283

PATIENT
  Age: 70 Year
  Sex: Male

DRUGS (2)
  1. ALIMTA [Suspect]
     Indication: NON-SMALL CELL LUNG CANCER STAGE IV
  2. CARBOPLATIN [Concomitant]
     Indication: NON-SMALL CELL LUNG CANCER STAGE IV

REACTIONS (3)
  - HAEMOPTYSIS [None]
  - HYPOXIA [None]
  - PNEUMONIA [None]
